FAERS Safety Report 4487634-3 (Version None)
Quarter: 2004Q4

REPORT INFORMATION
  Report Type: 
  Country: None (occurrence: None)
  Receive Date: 20041025
  Receipt Date: 20041014
  Transmission Date: 20050328
  Serious: Yes (Hospitalization)
  Sender: FDA-Public Use
  Company Number: US013946

PATIENT
  Age: 20 Year
  Sex: Female

DRUGS (10)
  1. GABITRIL [Suspect]
     Indication: BIPOLAR I DISORDER
     Dosage: 2 MG QD ORAL
     Route: 048
     Dates: start: 20040801, end: 20040801
  2. GABITRIL [Suspect]
     Indication: BIPOLAR I DISORDER
     Dosage: 2 MG BID ORAL
     Route: 048
     Dates: start: 20040801, end: 20040801
  3. GABITRIL [Suspect]
     Indication: BIPOLAR I DISORDER
     Dosage: 6 MG QD ORAL
     Route: 048
     Dates: start: 20040801, end: 20040801
  4. GABITRIL [Suspect]
     Indication: BIPOLAR I DISORDER
     Dosage: 4 MG BID ORAL
     Route: 048
     Dates: start: 20040801, end: 20040901
  5. LITHIUM [Concomitant]
  6. PAMELOR [Concomitant]
  7. ABILIFY [Concomitant]
  8. ATIVAN [Concomitant]
  9. CELEXA [Concomitant]
  10. SYNTHROID [Concomitant]

REACTIONS (3)
  - ECONOMIC PROBLEM [None]
  - NEPHROTIC SYNDROME [None]
  - TREATMENT NONCOMPLIANCE [None]
